FAERS Safety Report 16992502 (Version 1)
Quarter: 2019Q4

REPORT INFORMATION
  Report Type: Spontaneous
  Country: US (occurrence: US)
  Receive Date: 20191105
  Receipt Date: 20191105
  Transmission Date: 20200122
  Serious: No
  Sender: FDA-Public Use
  Company Number: US-ALLERGAN-1916463US

PATIENT
  Sex: Male

DRUGS (5)
  1. ATENOLOL. [Concomitant]
     Active Substance: ATENOLOL
     Indication: HYPERTENSION
     Dosage: 25 MG
     Route: 048
  2. RAPAFLO [Suspect]
     Active Substance: SILODOSIN
     Indication: URINE FLOW DECREASED
  3. RAPAFLO [Suspect]
     Active Substance: SILODOSIN
     Indication: MICTURITION URGENCY
  4. RAPAFLO [Suspect]
     Active Substance: SILODOSIN
     Indication: BENIGN PROSTATIC HYPERPLASIA
     Dosage: 8 MG, QD
     Route: 048
     Dates: start: 2017
  5. RAPAFLO [Suspect]
     Active Substance: SILODOSIN
     Indication: URINARY INCONTINENCE

REACTIONS (9)
  - Pollakiuria [Not Recovered/Not Resolved]
  - Therapeutic response decreased [Unknown]
  - Inability to afford medication [Unknown]
  - Urinary incontinence [Not Recovered/Not Resolved]
  - Urine flow decreased [Not Recovered/Not Resolved]
  - Wrong technique in product usage process [Unknown]
  - Sexual dysfunction [Unknown]
  - Therapy cessation [Unknown]
  - Micturition urgency [Not Recovered/Not Resolved]

NARRATIVE: CASE EVENT DATE: 201812
